FAERS Safety Report 8162067-7 (Version None)
Quarter: 2012Q1

REPORT INFORMATION
  Report Type: 
  Country: None (occurrence: None)
  Receive Date: 20120224
  Receipt Date: 20110622
  Transmission Date: 20120608
  Serious: No
  Sender: FDA-Public Use
  Company Number: US-BRISTOL-MYERS SQUIBB COMPANY-15846793

PATIENT
  Age: 55 Year
  Sex: Male

DRUGS (4)
  1. METFORMIN HCL [Suspect]
     Dates: start: 20110101
  2. JANUVIA [Suspect]
     Dates: start: 20110101
  3. GLIMEPIRIDE [Suspect]
     Dates: start: 20110101
  4. ACTOS [Suspect]
     Dates: start: 20110101

REACTIONS (1)
  - BLOOD GLUCOSE INCREASED [None]
